FAERS Safety Report 20523424 (Version 1)
Quarter: 2022Q1

REPORT INFORMATION
  Report Type: Spontaneous
  Country: FR (occurrence: FR)
  Receive Date: 20220228
  Receipt Date: 20220228
  Transmission Date: 20220423
  Serious: Yes (Congenital Anomaly, Other)
  Sender: FDA-Public Use
  Company Number: FR-ABBVIE-22K-056-4292248-00

PATIENT
  Sex: Male

DRUGS (1)
  1. VALPROATE SODIUM [Suspect]
     Active Substance: VALPROATE SODIUM
     Indication: Maternal exposure timing unspecified
     Route: 064

REACTIONS (22)
  - Talipes [Unknown]
  - Spinal deformity [Unknown]
  - Tracheitis [Unknown]
  - Cyst [Unknown]
  - Cryptorchism [Unknown]
  - Autism spectrum disorder [Unknown]
  - Scoliosis [Unknown]
  - Talipes [Unknown]
  - Amblyopia [Unknown]
  - Disturbance in attention [Unknown]
  - Tendon disorder [Unknown]
  - Asthma [Unknown]
  - Ear infection [Unknown]
  - Nasopharyngitis [Unknown]
  - Conjunctivitis [Unknown]
  - Rhinitis [Unknown]
  - Psychomotor skills impaired [Unknown]
  - Learning disorder [Unknown]
  - Learning disorder [Unknown]
  - Enuresis [Unknown]
  - Developmental delay [Unknown]
  - Foetal exposure during pregnancy [Unknown]
